FAERS Safety Report 8202827-7 (Version None)
Quarter: 2012Q1

REPORT INFORMATION
  Report Type: 
  Country: None (occurrence: None)
  Receive Date: 20120312
  Receipt Date: 20120312
  Transmission Date: 20120608
  Serious: Yes (Life-Threatening, Hospitalization)
  Sender: FDA-Public Use
  Company Number: None

PATIENT
  Sex: Female
  Weight: 23.1 kg

DRUGS (2)
  1. METHOTREXATE [Concomitant]
     Indication: PSORIATIC ARTHROPATHY
     Dosage: 17.5 MG OR 0.7 ML
     Route: 058
     Dates: start: 20100413, end: 20120220
  2. ENBREL [Suspect]
     Indication: PSORIATIC ARTHROPATHY
     Dosage: 15 MG OR 0.6 ML
     Route: 058
     Dates: start: 20110815, end: 20120213

REACTIONS (4)
  - SEPSIS [None]
  - BETA HAEMOLYTIC STREPTOCOCCAL INFECTION [None]
  - OSTEOMYELITIS [None]
  - BACTERAEMIA [None]
